FAERS Safety Report 7725443-X (Version None)
Quarter: 2011Q3

REPORT INFORMATION
  Report Type: 
  Country: None (occurrence: None)
  Receive Date: 20110902
  Receipt Date: 20110824
  Transmission Date: 20111222
  Serious: Yes (Hospitalization)
  Sender: FDA-Public Use
  Company Number: IL-JNJFOC-20101208497

PATIENT
  Age: 63 Year
  Sex: Male
  Weight: 91.5 kg

DRUGS (16)
  1. RIFAMPIN [Concomitant]
     Indication: ANTIBIOTIC PROPHYLAXIS
     Route: 048
     Dates: start: 20100808
  2. PLAQUENIL [Concomitant]
     Indication: RHEUMATOID ARTHRITIS
     Dosage: ^X 2 D^
     Dates: start: 20100601
  3. ATORVASTATIN [Concomitant]
     Indication: HYPERCHOLESTEROLAEMIA
     Route: 048
     Dates: start: 20090801
  4. TENORMIN [Concomitant]
     Indication: HYPERTENSION
     Dates: start: 20080101
  5. VITAMIN D [Concomitant]
     Indication: PROPHYLAXIS
     Dates: start: 20060101
  6. VALSARTAN [Concomitant]
     Indication: HYPERTENSION
     Route: 048
     Dates: start: 20100922
  7. LANSOPRAZOLE [Concomitant]
     Indication: PROPHYLAXIS
     Dates: start: 20090101
  8. APIDRA [Concomitant]
     Indication: DIABETES MELLITUS
     Dosage: 6-8 UNITS
     Dates: start: 19950101
  9. FAMOTIDINE [Concomitant]
     Indication: PROPHYLAXIS
     Dates: start: 20080101
  10. CALTRATE AND VITAMIN D [Concomitant]
     Indication: PROPHYLAXIS
     Dates: start: 20060101
  11. GOLIMUMAB [Suspect]
     Indication: RHEUMATOID ARTHRITIS
     Route: 058
     Dates: start: 20100915, end: 20101114
  12. ALENDRONATE SODIUM [Concomitant]
     Indication: PROPHYLAXIS
     Route: 048
     Dates: start: 20090101
  13. ASPIRIN [Concomitant]
     Indication: PROPHYLAXIS
     Route: 048
     Dates: start: 20090601
  14. FOLIC ACID [Concomitant]
     Indication: PROPHYLAXIS
     Dates: start: 20070101
  15. PREDNISONE [Concomitant]
     Indication: RHEUMATOID ARTHRITIS
  16. LANTUS [Concomitant]
     Indication: DIABETES MELLITUS
     Route: 058
     Dates: start: 19950101

REACTIONS (1)
  - BASAL CELL CARCINOMA [None]
